FAERS Safety Report 17724668 (Version 4)
Quarter: 2022Q2

REPORT INFORMATION
  Report Type: Spontaneous
  Country: IT (occurrence: IT)
  Receive Date: 20200429
  Receipt Date: 20220513
  Transmission Date: 20220721
  Serious: Yes (Hospitalization, Other)
  Sender: FDA-Public Use
  Company Number: None

PATIENT
  Age: 5 Year
  Sex: Male

DRUGS (4)
  1. OMEPRAZOLE [Interacting]
     Active Substance: OMEPRAZOLE
     Indication: Product used for unknown indication
     Dosage: 1 MG/KG, QD
     Route: 042
  2. OMEPRAZOLE [Interacting]
     Active Substance: OMEPRAZOLE
     Dosage: 0.8 MG/KG, QD
     Route: 042
  3. PHENYTOIN [Interacting]
     Active Substance: PHENYTOIN
     Indication: Nervous system disorder prophylaxis
     Dosage: 10 MG/KG, QD
     Route: 042
  4. PHENYTOIN [Interacting]
     Active Substance: PHENYTOIN
     Indication: Post-traumatic epilepsy
     Dosage: 5 MG/KG, BID
     Route: 042

REACTIONS (16)
  - Nystagmus [Recovering/Resolving]
  - Mydriasis [Recovering/Resolving]
  - Altered state of consciousness [Recovering/Resolving]
  - Drug level above therapeutic [Recovered/Resolved]
  - Drug interaction [Recovered/Resolved]
  - Extensor plantar response [Recovering/Resolving]
  - Hyperventilation [Recovering/Resolving]
  - Toxicity to various agents [Recovering/Resolving]
  - Respiratory distress [Recovered/Resolved]
  - Tachypnoea [Recovered/Resolved]
  - Depressed level of consciousness [Recovering/Resolving]
  - Psychomotor hyperactivity [Recovering/Resolving]
  - Brain contusion [Recovering/Resolving]
  - Cerebral haemorrhage [Recovering/Resolving]
  - Somatosensory evoked potentials abnormal [Recovering/Resolving]
  - Off label use [Unknown]
